FAERS Safety Report 5719590-1 (Version None)
Quarter: 2008Q2

REPORT INFORMATION
  Report Type: 
  Country: None (occurrence: None)
  Receive Date: 20080428
  Receipt Date: 20080418
  Transmission Date: 20081010
  Serious: Yes (Other)
  Sender: FDA-Public Use
  Company Number: B0502536A

PATIENT
  Age: 55 Year
  Sex: Male
  Weight: 85 kg

DRUGS (3)
  1. MALARONE [Suspect]
     Indication: MALARIA PROPHYLAXIS
     Dosage: 1TAB PER DAY
     Route: 048
     Dates: start: 20070923, end: 20071014
  2. LYSANXIA [Concomitant]
     Dosage: .5TAB PER DAY
     Route: 048
     Dates: start: 19850101
  3. SERESTA 50 [Concomitant]
     Dosage: .5TAB TWICE PER DAY
     Route: 048
     Dates: start: 19850101

REACTIONS (4)
  - ALANINE AMINOTRANSFERASE INCREASED [None]
  - ASPARTATE AMINOTRANSFERASE INCREASED [None]
  - GAMMA-GLUTAMYLTRANSFERASE INCREASED [None]
  - SERUM FERRITIN INCREASED [None]
